FAERS Safety Report 9894271 (Version 3)
Quarter: 2014Q1

REPORT INFORMATION
  Report Type: Spontaneous
  Country: US (occurrence: US)
  Receive Date: 20140213
  Receipt Date: 20140218
  Transmission Date: 20141002
  Serious: Yes (Death, Hospitalization)
  Sender: FDA-Public Use
  Company Number: US-GLAXOSMITHKLINE-A1060853A

PATIENT
  Age: 57 Year
  Sex: Female

DRUGS (2)
  1. FLOLAN [Suspect]
     Indication: PULMONARY ARTERIAL HYPERTENSION
     Dosage: 58NGKM UNKNOWN
     Route: 065
     Dates: start: 19990805
  2. COUMADIN [Concomitant]

REACTIONS (8)
  - Cerebrovascular accident [Unknown]
  - Myocardial infarction [Unknown]
  - Cardiac assistance device user [Unknown]
  - Mechanical ventilation [Unknown]
  - Thrombosis [Unknown]
  - Loss of consciousness [Unknown]
  - Intensive care [Unknown]
  - Death [Fatal]
